FAERS Safety Report 10931123 (Version 1)
Quarter: 2015Q1

REPORT INFORMATION
  Report Type: Spontaneous
  Country: PL (occurrence: None)
  Receive Date: 20150317
  Receipt Date: 20150317
  Transmission Date: 20150721
  Serious: Yes (Hospitalization)
  Sender: FDA-Public Use
  Company Number: FK201501237

PATIENT
  Age: 13 Year
  Sex: Female

DRUGS (3)
  1. IFOSFAMIDE (MANUFACTURER UNKNOWN) (IFOSFAMIDE) (IFOSFAMIDE) [Suspect]
     Active Substance: IFOSFAMIDE
     Indication: OVARIAN GERM CELL ENDODERMAL SINUS TUMOUR
  2. ETOPOSIDE (MANUFACTURER UNKNOWN) (ETOPOSIDE) (ETOPOSIDE) [Suspect]
     Active Substance: ETOPOSIDE
     Indication: OVARIAN GERM CELL ENDODERMAL SINUS TUMOUR
  3. CISPLATIN (MANUFACTURER UNKNOWN) (CISPLATIN) (CISPLATIN) [Suspect]
     Active Substance: CISPLATIN
     Indication: OVARIAN GERM CELL ENDODERMAL SINUS TUMOUR

REACTIONS (8)
  - Chronic kidney disease [None]
  - Renal tubular disorder [None]
  - Hypokalaemia [None]
  - Malnutrition [None]
  - Anaemia [None]
  - Hypomagnesaemia [None]
  - Haemodialysis [None]
  - Asthenia [None]

NARRATIVE: CASE EVENT DATE: 200508
